FAERS Safety Report 22112047 (Version 5)
Quarter: 2023Q2

REPORT INFORMATION
  Report Type: Report from Study
  Country: US (occurrence: US)
  Receive Date: 20230318
  Receipt Date: 20230629
  Transmission Date: 20230722
  Serious: No
  Sender: FDA-Public Use
  Company Number: US-002147023-NVSC2023US060894

PATIENT
  Age: 20 Year
  Sex: Female

DRUGS (2)
  1. ILARIS [Suspect]
     Active Substance: CANAKINUMAB
     Indication: Still^s disease
     Dosage: 150 MG, OTHER (EVERY 4 WEEKS)
     Route: 058
     Dates: start: 20201007
  2. ILARIS [Suspect]
     Active Substance: CANAKINUMAB
     Indication: Rheumatoid arthritis
     Dosage: 150 MG (EVERY 28 DAYS)
     Route: 058
     Dates: start: 20230313

REACTIONS (5)
  - Skin irritation [Unknown]
  - Fatigue [Unknown]
  - Headache [Unknown]
  - Infection [Unknown]
  - Inappropriate schedule of product administration [Unknown]

NARRATIVE: CASE EVENT DATE: 20230310
